FAERS Safety Report 19787096 (Version 1)
Quarter: 2021Q3

REPORT INFORMATION
  Report Type: Spontaneous
  Country: CN (occurrence: CN)
  Receive Date: 20210903
  Receipt Date: 20210903
  Transmission Date: 20211014
  Serious: Yes (Life-Threatening, Hospitalization, Other)
  Sender: FDA-Public Use
  Company Number: CN-LUPIN PHARMACEUTICALS INC.-2021-16465

PATIENT
  Age: 55 Year
  Sex: Female

DRUGS (3)
  1. MAGNESIUM CHLORIDE. [Suspect]
     Active Substance: MAGNESIUM CHLORIDE
     Indication: HYPOMAGNESAEMIA
     Dosage: UNK UNK, QD (EQUIVALENT TO ELEMENT MAGNESIUM 350 MG/DAY)
     Route: 065
  2. REPAGLINIDE. [Suspect]
     Active Substance: REPAGLINIDE
     Indication: TYPE 2 DIABETES MELLITUS
     Dosage: 3 MILLIGRAM, QD
     Route: 048
  3. POTASSIUM CHLORIDE. [Suspect]
     Active Substance: POTASSIUM CHLORIDE
     Indication: HYPOKALAEMIA
     Dosage: 3 GRAM, QD
     Route: 065

REACTIONS (1)
  - Hypoglycaemic coma [Recovered/Resolved]
